FAERS Safety Report 6178337-8 (Version None)
Quarter: 2009Q2

REPORT INFORMATION
  Report Type: 
  Country: None (occurrence: None)
  Receive Date: 20090504
  Receipt Date: 20090429
  Transmission Date: 20091009
  Serious: Yes (Hospitalization)
  Sender: FDA-Public Use
  Company Number: NO-SANOFI-SYNTHELABO-F01200900418

PATIENT
  Sex: Female

DRUGS (14)
  1. MORPHINE [Concomitant]
     Dosage: UNK
     Route: 065
     Dates: start: 20090406
  2. DIURAL [Concomitant]
     Dosage: UNK
     Route: 065
     Dates: start: 20090406
  3. SOMAC [Concomitant]
     Dosage: UNK
     Route: 065
     Dates: start: 20090406
  4. FRAGMIN [Concomitant]
     Dosage: UNK
     Route: 065
     Dates: start: 20090331
  5. ACETAMINOPHEN [Concomitant]
     Dosage: UNK
     Route: 065
     Dates: start: 20081002
  6. OMEGA [Concomitant]
     Dosage: UNK
     Route: 065
  7. MULTI VITAMIN NOS [Concomitant]
     Dosage: UNK
     Route: 065
  8. DUPHALAC [Concomitant]
     Dosage: UNK
     Route: 065
     Dates: start: 20090114, end: 20090331
  9. MEDROL [Concomitant]
     Dosage: UNK
     Route: 065
     Dates: start: 20090205
  10. OXYNORM [Concomitant]
     Dosage: UNK
     Route: 065
     Dates: start: 20090205
  11. OXYCONTIN [Concomitant]
     Dosage: UNK
     Route: 065
     Dates: start: 20090205, end: 20090406
  12. BEVACIZUMAB [Suspect]
     Indication: COLORECTAL CANCER
     Route: 042
     Dates: start: 20090209, end: 20090209
  13. FLUOROURACIL [Suspect]
     Indication: COLORECTAL CANCER
     Dosage: UNK
     Route: 065
  14. OXALIPLATIN [Suspect]
     Indication: COLORECTAL CANCER
     Dosage: UNK
     Route: 042

REACTIONS (3)
  - FEBRILE NEUTROPENIA [None]
  - FEMORAL NECK FRACTURE [None]
  - THROMBOSIS [None]
